FAERS Safety Report 25858340 (Version 2)
Quarter: 2025Q4

REPORT INFORMATION
  Report Type: Spontaneous
  Country: US (occurrence: US)
  Receive Date: 20250929
  Receipt Date: 20251015
  Transmission Date: 20260118
  Serious: Yes (Hospitalization, Other)
  Sender: AUROBINDO
  Company Number: US-MLMSERVICE-20250910-PI638256-00218-2

PATIENT
  Age: 14 Year
  Sex: Male

DRUGS (12)
  1. METHOTREXATE [Suspect]
     Active Substance: METHOTREXATE
     Indication: T-cell type acute leukaemia
     Dosage: UNK
     Route: 048
     Dates: start: 2023, end: 2023
  2. DEXAMETHASONE [Suspect]
     Active Substance: DEXAMETHASONE
     Indication: T-cell type acute leukaemia
     Dosage: 6 MILLIGRAM/SQ. METER
     Route: 048
     Dates: start: 2022
  3. MERCAPTOPURINE [Suspect]
     Active Substance: MERCAPTOPURINE
     Indication: T-cell type acute leukaemia
     Dosage: UNK
     Route: 048
     Dates: start: 2023, end: 2023
  4. VINCRISTINE [Concomitant]
     Active Substance: VINCRISTINE
     Indication: T-cell type acute leukaemia
     Dosage: 1.5 MG/M2
     Route: 042
     Dates: start: 2022
  5. DAUNORUBICIN [Concomitant]
     Active Substance: DAUNORUBICIN
     Indication: T-cell type acute leukaemia
     Dosage: 25 MG/M2
     Route: 042
     Dates: start: 2022
  6. PEGASPARGASE [Concomitant]
     Active Substance: PEGASPARGASE
     Indication: T-cell type acute leukaemia
     Dosage: UNK
     Route: 042
     Dates: start: 2022
  7. CYCLOPHOSPHAMIDE [Concomitant]
     Active Substance: CYCLOPHOSPHAMIDE
     Indication: T-cell type acute leukaemia
     Dosage: UNK
     Route: 065
     Dates: start: 2022
  8. CYTARABINE [Concomitant]
     Active Substance: CYTARABINE
     Indication: T-cell type acute leukaemia
     Dosage: UNK
     Route: 065
     Dates: start: 2022
  9. NELARABINE [Concomitant]
     Active Substance: NELARABINE
     Indication: T-cell type acute leukaemia
     Dosage: UNK
     Route: 065
  10. TOLODODEKIN ALFA [Concomitant]
     Active Substance: TOLODODEKIN ALFA
     Indication: T-cell type acute leukaemia
     Dosage: UNK (BIWEEKLY)
     Route: 065
  11. CETIRIZINE [Concomitant]
     Active Substance: CETIRIZINE HYDROCHLORIDE
     Indication: Premedication
     Dosage: UNK
     Route: 065
  12. MONTELUKAST [Concomitant]
     Active Substance: MONTELUKAST
     Indication: Premedication
     Dosage: UNK
     Route: 065

REACTIONS (7)
  - Sepsis [Unknown]
  - Psoas abscess [Unknown]
  - Small intestinal obstruction [Unknown]
  - Wernicke^s encephalopathy [Unknown]
  - Atrioventricular block first degree [Unknown]
  - Myelosuppression [Unknown]
  - Steroid diabetes [Recovered/Resolved]

NARRATIVE: CASE EVENT DATE: 20220101
